FAERS Safety Report 7956190-7 (Version None)
Quarter: 2011Q4

REPORT INFORMATION
  Report Type: 
  Country: None (occurrence: None)
  Receive Date: 20111205
  Receipt Date: 20111123
  Transmission Date: 20120403
  Serious: Yes (Hospitalization)
  Sender: FDA-Public Use
  Company Number: DE-US-EMD SERONO, INC.-7098320

PATIENT
  Sex: Female

DRUGS (3)
  1. VALOXAN (AGOMELATINE) [Concomitant]
     Indication: DEPRESSION
  2. UNSPECIFIED MEDICATION [Concomitant]
     Indication: RESTLESS LEGS SYNDROME
  3. REBIF [Suspect]
     Indication: MULTIPLE SCLEROSIS
     Route: 058

REACTIONS (2)
  - HEPATITIS E [None]
  - MUSCLE SPASTICITY [None]
